FAERS Safety Report 22904824 (Version 4)
Quarter: 2024Q1

REPORT INFORMATION
  Report Type: Spontaneous
  Country: US (occurrence: US)
  Receive Date: 20230905
  Receipt Date: 20240213
  Transmission Date: 20240410
  Serious: No
  Sender: FDA-Public Use
  Company Number: US-BRISTOL-MYERS SQUIBB COMPANY-2023-124961

PATIENT
  Age: 68 Year
  Sex: Male
  Weight: 81.65 kg

DRUGS (2)
  1. POMALYST [Suspect]
     Active Substance: POMALIDOMIDE
     Indication: Plasma cell myeloma
     Route: 048
  2. POMALYST [Suspect]
     Active Substance: POMALIDOMIDE
     Dosage: FREQUENCY D 1-5, 8-12 + 5-19
     Route: 048
     Dates: start: 20230701

REACTIONS (10)
  - Platelet count decreased [Unknown]
  - Dry skin [Recovering/Resolving]
  - Skin exfoliation [Not Recovered/Not Resolved]
  - Pruritus [Recovering/Resolving]
  - Abdominal distension [Not Recovered/Not Resolved]
  - Flatulence [Not Recovered/Not Resolved]
  - Constipation [Not Recovered/Not Resolved]
  - Off label use [Unknown]
  - Gastrointestinal disorder [Not Recovered/Not Resolved]
  - Hypoaesthesia [Not Recovered/Not Resolved]
